FAERS Safety Report 22323184 (Version 1)
Quarter: 2023Q2

REPORT INFORMATION
  Report Type: Spontaneous
  Country: US (occurrence: US)
  Receive Date: 20230516
  Receipt Date: 20230516
  Transmission Date: 20230722
  Serious: Yes (Hospitalization)
  Sender: FDA-Public Use
  Company Number: US-HETERO-HET2023US01265

PATIENT
  Age: 35 Year
  Sex: Male

DRUGS (5)
  1. HYDROXYZINE [Interacting]
     Active Substance: HYDROXYZINE HYDROCHLORIDE
     Indication: Anxiety
     Dosage: 50 MILLIGRAM, EVERY 6 HOURS AS NEEDED
     Route: 048
  2. HYDROXYZINE [Interacting]
     Active Substance: HYDROXYZINE HYDROCHLORIDE
     Indication: Insomnia
     Dosage: NIGHTLY
     Route: 065
  3. RISPERIDONE [Interacting]
     Active Substance: RISPERIDONE
     Indication: Psychotic disorder
     Dosage: 2 MILLIGRAM, Q.H.S.
     Route: 048
  4. RISPERIDONE [Interacting]
     Active Substance: RISPERIDONE
     Dosage: 4 MILLIGRAM, Q.H.S.
     Route: 048
  5. RISPERIDONE [Interacting]
     Active Substance: RISPERIDONE
     Dosage: 3 MILLIGRAM
     Route: 065

REACTIONS (2)
  - Priapism [Recovered/Resolved]
  - Drug interaction [Unknown]
